FAERS Safety Report 5894833-2 (Version None)
Quarter: 2008Q3

REPORT INFORMATION
  Report Type: 
  Country: None (occurrence: None)
  Receive Date: 20080924
  Receipt Date: 20080918
  Transmission Date: 20090109
  Serious: Yes (Other)
  Sender: FDA-Public Use
  Company Number: US-NOVOPROD-279558

PATIENT
  Sex: Female

DRUGS (8)
  1. NOVOLOG [Suspect]
     Indication: DIABETES MELLITUS
     Dosage: UNK, UNK
     Route: 058
  2. NOVOLOG MIX 70/30 [Suspect]
     Indication: DIABETES MELLITUS
     Route: 058
  3. SYMLIN [Suspect]
     Indication: DIABETES MELLITUS
     Dosage: 30 UG, TID
     Route: 058
     Dates: start: 20060101, end: 20060101
  4. SYMLIN [Suspect]
     Dosage: 60 UG, TID
     Route: 058
     Dates: start: 20060101, end: 20060101
  5. SYMLIN [Suspect]
     Dosage: 120 UG, TID
     Route: 058
     Dates: start: 20060101, end: 20080701
  6. SYMLIN [Suspect]
     Dosage: 30 UG, TID
     Route: 058
     Dates: start: 20080801
  7. HUMALOG [Concomitant]
     Indication: DIABETES MELLITUS
     Dosage: 10 MG, QD
     Dates: start: 20080829
  8. SYNTHROID [Concomitant]

REACTIONS (6)
  - BLOOD GLUCOSE INCREASED [None]
  - COLLAPSE OF LUNG [None]
  - DIARRHOEA [None]
  - DIZZINESS [None]
  - FATIGUE [None]
  - INJECTION SITE HAEMATOMA [None]
